FAERS Safety Report 8911595 (Version 2)
Quarter: 2012Q4

REPORT INFORMATION
  Report Type: 
  Country: VE (occurrence: VE)
  Receive Date: 20121116
  Receipt Date: 20121127
  Transmission Date: 20130627
  Serious: Yes (Death)
  Sender: FDA-Public Use
  Company Number: VE-PFIZER INC-2012286387

PATIENT
  Age: 91 Year
  Sex: Male

DRUGS (1)
  1. LIPITOR [Suspect]
     Indication: CARDIAC INSUFFICIENCY
     Dosage: 40 mg, once daily
     Route: 048
     Dates: start: 20120505, end: 20120822

REACTIONS (1)
  - Myocardial infarction [Fatal]
